FAERS Safety Report 23299961 (Version 1)
Quarter: 2023Q4

REPORT INFORMATION
  Report Type: Spontaneous
  Country: US (occurrence: US)
  Receive Date: 20231215
  Receipt Date: 20231215
  Transmission Date: 20240109
  Serious: Yes (Other)
  Sender: FDA-Public Use
  Company Number: US-CIPLA LTD.-2023US07809

PATIENT

DRUGS (1)
  1. ZONISAMIDE [Suspect]
     Active Substance: ZONISAMIDE
     Indication: Seizure
     Dosage: 100 MILLIGRAM, BID, DOSAGE IS 1 CAPSULE AM/PM FOR A FULL DOSE OF 200 MG
     Route: 065

REACTIONS (4)
  - Failure to thrive [Unknown]
  - Underweight [Unknown]
  - Epiphyses delayed fusion [Unknown]
  - Off label use [Unknown]
